FAERS Safety Report 9508477 (Version 1)
Quarter: 2013Q1

REPORT INFORMATION
  Report Type: Spontaneous
  Country: US (occurrence: None)
  Receive Date: 20130305
  Receipt Date: 20130305
  Transmission Date: 20140127
  Serious: Yes (Other)
  Sender: FDA-Public Use
  Company Number: 163-21880-12112203

PATIENT
  Age: 74 Year
  Sex: Male
  Weight: 97.71 kg

DRUGS (16)
  1. REVLIMID [Suspect]
     Indication: PLASMA CELL MYELOMA
     Dosage: CAPSULE, 10 MG, THEN OFF 1 WEEK, PO
     Dates: start: 20100129
  2. POTASSIUM CHLORIDE [Concomitant]
  3. CENTRUM SILVER [Concomitant]
  4. SIMVASTATIN [Concomitant]
  5. HYDROXYCHLOROQUINE [Concomitant]
  6. PROBENECID [Concomitant]
  7. VITAMIN B-12 (CYANOCOBALAMIN) [Concomitant]
  8. COLCRYS (COLCHICINE) [Concomitant]
  9. LISINOPRIL [Concomitant]
  10. CYCLOBENZAPRINE [Concomitant]
  11. FUROSEMIDE [Concomitant]
  12. GABAPENTIN [Concomitant]
  13. ASPIRIN (ACETYLSALICYLIC ACID) [Concomitant]
  14. DEXAMETHASONE [Concomitant]
  15. ZOMETA (ZOLEDRONIC ACID) [Concomitant]
  16. WARFARIN [Concomitant]

REACTIONS (5)
  - Drug dose omission [None]
  - Diarrhoea [None]
  - Rash macular [None]
  - Pruritus [None]
  - Dry skin [None]
